FAERS Safety Report 5950808-6 (Version None)
Quarter: 2008Q4

REPORT INFORMATION
  Report Type: 
  Country: None (occurrence: None)
  Receive Date: 20081112
  Receipt Date: 20081105
  Transmission Date: 20090506
  Serious: Yes (Other)
  Sender: FDA-Public Use
  Company Number: IT-GILEAD-2008-0018924

PATIENT
  Sex: Female

DRUGS (3)
  1. TRUVADA [Suspect]
  2. REYATAZ [Concomitant]
  3. RITONAVIR [Concomitant]

REACTIONS (1)
  - HAEMOLYTIC ANAEMIA [None]
